FAERS Safety Report 24353097 (Version 1)
Quarter: 2024Q3

REPORT INFORMATION
  Report Type: Report from Study
  Country: BR (occurrence: BR)
  Receive Date: 20240923
  Receipt Date: 20240923
  Transmission Date: 20241017
  Serious: No
  Sender: ROCHE
  Company Number: BR-ROCHE-3471115

PATIENT
  Age: 61 Year
  Sex: Female

DRUGS (6)
  1. TRASTUZUMAB [Suspect]
     Active Substance: TRASTUZUMAB
     Indication: Breast cancer
     Dosage: CUMULATIVE DOSE: 348 MG
     Route: 041
     Dates: start: 20201020, end: 20210922
  2. DOXORUBICIN [Suspect]
     Active Substance: DOXORUBICIN
     Indication: Breast cancer
     Dosage: CUMULATIVE DOSE: 99.12 MG
     Route: 042
     Dates: start: 20200715, end: 20200916
  3. CYCLOPHOSPHAMIDE [Suspect]
     Active Substance: CYCLOPHOSPHAMIDE
     Indication: Breast cancer
     Dosage: CUMULATIVE DOSE: 991.2 MG
     Route: 042
     Dates: start: 20200715, end: 20200916
  4. PACLITAXEL [Suspect]
     Active Substance: PACLITAXEL
     Indication: Breast cancer
     Dosage: CUMULATIVE DOSE: 131.52 MG
     Route: 042
     Dates: start: 20201020, end: 20201230
  5. ANASTROZOLE [Suspect]
     Active Substance: ANASTROZOLE
     Indication: Breast cancer
     Route: 048
     Dates: start: 202104
  6. INDAPAMIDE [Concomitant]
     Active Substance: INDAPAMIDE
     Route: 048

REACTIONS (2)
  - Mitral valve incompetence [Not Recovered/Not Resolved]
  - Osteopenia [Recovered/Resolved]

NARRATIVE: CASE EVENT DATE: 20210819
